FAERS Safety Report 5696076-4 (Version None)
Quarter: 2008Q2

REPORT INFORMATION
  Report Type: 
  Country: None (occurrence: None)
  Receive Date: 20080407
  Receipt Date: 20080403
  Transmission Date: 20081010
  Serious: Yes (Other)
  Sender: FDA-Public Use
  Company Number: B0513692A

PATIENT
  Age: 12 Year
  Sex: Male

DRUGS (2)
  1. RELENZA [Suspect]
     Indication: INFLUENZA
     Dosage: 10MG TWICE PER DAY
     Route: 055
     Dates: start: 20080313, end: 20080314
  2. HOKUNALIN [Concomitant]
     Indication: BRONCHITIS
     Route: 062
     Dates: start: 20080313, end: 20080318

REACTIONS (4)
  - ABNORMAL BEHAVIOUR [None]
  - AMNESIA [None]
  - PHARYNGOLARYNGEAL PAIN [None]
  - THIRST [None]
